FAERS Safety Report 5610551-X (Version None)
Quarter: 2008Q1

REPORT INFORMATION
  Report Type: 
  Country: None (occurrence: None)
  Receive Date: 20080201
  Receipt Date: 20080122
  Transmission Date: 20080703
  Serious: Yes (Hospitalization)
  Sender: FDA-Public Use
  Company Number: ZA-JNJFOC-20080105364

PATIENT
  Sex: Female

DRUGS (4)
  1. DURAGESIC-100 [Suspect]
     Indication: DRUG USE FOR UNKNOWN INDICATION
     Route: 062
  2. ARTHREXIN [Concomitant]
     Route: 065
  3. TREPILINE [Concomitant]
     Route: 065
  4. MYPRODOL [Concomitant]
     Route: 065

REACTIONS (4)
  - HEADACHE [None]
  - MELAENA [None]
  - NAUSEA [None]
  - VOMITING [None]
